FAERS Safety Report 4622296-3 (Version None)
Quarter: 2005Q1

REPORT INFORMATION
  Report Type: 
  Country: None (occurrence: None)
  Receive Date: 20050328
  Receipt Date: 20050317
  Transmission Date: 20050727
  Serious: Yes (Other)
  Sender: FDA-Public Use
  Company Number: 2005020072

PATIENT
  Sex: Female
  Weight: 60 kg

DRUGS (1)
  1. LYRICA [Suspect]
     Indication: NEURALGIA
     Dosage: 150 MG (75 MG, 2 IN 1 D) ORAL
     Route: 048
     Dates: start: 20050112, end: 20050115

REACTIONS (11)
  - DIZZINESS [None]
  - EAR DISCOMFORT [None]
  - EAR DISORDER [None]
  - FATIGUE [None]
  - GAIT DISTURBANCE [None]
  - HIPPUS [None]
  - MEDICATION ERROR [None]
  - NAUSEA [None]
  - TACHYCARDIA [None]
  - TENSION HEADACHE [None]
  - THERAPY NON-RESPONDER [None]
